FAERS Safety Report 9187892 (Version 1)
Quarter: 2013Q1

REPORT INFORMATION
  Report Type: Spontaneous
  Country: US (occurrence: US)
  Receive Date: 20130325
  Receipt Date: 20130325
  Transmission Date: 20140127
  Serious: No
  Sender: FDA-Public Use
  Company Number: US-MYLANLABS-2012S1015888

PATIENT
  Age: 68 Year
  Sex: Female

DRUGS (8)
  1. FENTANYL TRANSDERMAL SYSTEM [Suspect]
     Indication: PAIN
     Dosage: Q3D
     Route: 062
     Dates: start: 2011
  2. LEVOTHYROXINE [Concomitant]
     Indication: THYROID DISORDER
     Route: 048
  3. HYDROCODONE [Concomitant]
     Indication: BREAKTHROUGH PAIN
     Route: 048
  4. NEXIUM [Concomitant]
     Route: 048
  5. CELEBREX [Concomitant]
     Indication: ARTHRITIS
     Route: 048
  6. VESICARE [Concomitant]
     Indication: BLADDER DISORDER
     Route: 048
  7. TORSEMIDE [Concomitant]
     Indication: FLUID RETENTION
     Route: 048
  8. PROAIR /00139502/ [Concomitant]
     Indication: CHRONIC OBSTRUCTIVE PULMONARY DISEASE
     Route: 055

REACTIONS (1)
  - Burning feet syndrome [Recovering/Resolving]
